FAERS Safety Report 24222516 (Version 4)
Quarter: 2025Q1

REPORT INFORMATION
  Report Type: Report from Study
  Country: DE (occurrence: DE)
  Receive Date: 20240819
  Receipt Date: 20250103
  Transmission Date: 20250409
  Serious: Yes (Hospitalization)
  Sender: TAKEDA
  Company Number: DE-TAKEDA-2024TUS080781

PATIENT
  Age: 63 Year
  Sex: Male

DRUGS (10)
  1. RURIOCTOCOG ALFA PEGOL [Suspect]
     Active Substance: RURIOCTOCOG ALFA PEGOL
     Indication: Factor VIII deficiency
     Dosage: 36.4 INTERNATIONAL UNIT/KILOGRAM, 2/WEEK
     Dates: start: 20220912
  2. RURIOCTOCOG ALFA PEGOL [Suspect]
     Active Substance: RURIOCTOCOG ALFA PEGOL
  3. RURIOCTOCOG ALFA PEGOL [Suspect]
     Active Substance: RURIOCTOCOG ALFA PEGOL
  4. BICTEGRAVIR [Concomitant]
     Active Substance: BICTEGRAVIR
     Indication: HIV infection
  5. EMTRICITABINE\TENOFOVIR [Concomitant]
     Active Substance: EMTRICITABINE\TENOFOVIR
     Indication: HIV infection
     Dosage: 200 MILLIGRAM, QD
     Dates: start: 2019
  6. CABERGOLINUM [Concomitant]
     Indication: Prolactin-producing pituitary tumour
     Dosage: 1 MILLIGRAM, 1/WEEK
     Dates: start: 201802
  7. PANTOPRAZOLE SODIUM [Concomitant]
     Active Substance: PANTOPRAZOLE SODIUM
     Indication: Gastrointestinal disorder prophylaxis
     Dosage: 40 MILLIGRAM, QD
     Dates: start: 20230530, end: 20230606
  8. METAMIZOLE [Concomitant]
     Active Substance: METAMIZOLE
     Indication: Pain
     Dosage: 500 MILLIGRAM, QID
     Dates: start: 20230530, end: 20230606
  9. BIKTARVY [Concomitant]
     Active Substance: BICTEGRAVIR SODIUM\EMTRICITABINE\TENOFOVIR ALAFENAMIDE FUMARATE
     Indication: HIV infection
     Dosage: 25 MILLIGRAM, QD
     Dates: start: 2019
  10. LEVOTHYROXINE SODIUM [Concomitant]
     Active Substance: LEVOTHYROXINE SODIUM
     Indication: Prolactin-producing pituitary tumour
     Dosage: 75 MILLIGRAM, QD
     Dates: start: 201802

REACTIONS (2)
  - Post procedural complication [Recovered/Resolved]
  - Hydrocele [Recovered/Resolved]

NARRATIVE: CASE EVENT DATE: 20240222
